FAERS Safety Report 8597474 (Version 4)
Quarter: 2013Q3

REPORT INFORMATION
  Report Type: Spontaneous
  Country: US (occurrence: US)
  Receive Date: 20120605
  Receipt Date: 20130920
  Transmission Date: 20140515
  Serious: Yes (Hospitalization, Other)
  Sender: FDA-Public Use
  Company Number: US-ASTRAZENECA-2012SE35864

PATIENT
  Age: 51 Year
  Sex: Female
  Weight: 83.5 kg

DRUGS (27)
  1. CIPRO [Concomitant]
     Dates: start: 20020301
  2. ATENOLOL [Concomitant]
     Dates: start: 20020301
  3. NORVASC [Concomitant]
     Dates: start: 20020301
  4. UNIPHYL [Concomitant]
     Dates: start: 20020307
  5. POTASSIUM CL [Concomitant]
     Dates: start: 20020308
  6. DIPHENOXYLATE/ATROPINE [Concomitant]
     Dates: start: 20020308
  7. ACIPHEX [Concomitant]
     Dates: start: 20020308
  8. NEURONTIN [Concomitant]
     Dates: start: 20020506
  9. HYZAAR [Concomitant]
     Dosage: 50-12.5
     Dates: start: 20020522
  10. BIAXIN [Concomitant]
     Dates: start: 20020801
  11. CLARITIN [Concomitant]
     Dates: start: 20020801
  12. PREMARIN [Concomitant]
     Dates: start: 20020403
  13. PREMARIN [Concomitant]
  14. FUROSEMIDE [Concomitant]
     Indication: BLOOD PRESSURE ABNORMAL
  15. METFORMIN [Concomitant]
     Indication: BLOOD GLUCOSE ABNORMAL
  16. HYDROCODON [Concomitant]
     Indication: BACK PAIN
  17. CETIRIZINE [Concomitant]
     Indication: BLOOD PRESSURE ABNORMAL
  18. VITAMIN B1 [Concomitant]
     Indication: MEDICAL DIET
  19. LABETALOL [Concomitant]
  20. DIOVAN [Concomitant]
  21. CLONIDINE [Concomitant]
  22. NEXIUM [Suspect]
     Indication: GASTROOESOPHAGEAL REFLUX DISEASE
     Route: 048
     Dates: start: 20020506
  23. NEXIUM [Suspect]
     Indication: GASTROOESOPHAGEAL REFLUX DISEASE
     Route: 048
     Dates: start: 2008, end: 2013
  24. NEXIUM [Suspect]
     Indication: GASTROOESOPHAGEAL REFLUX DISEASE
     Dosage: TAKE AS NEEDED
     Route: 048
     Dates: start: 20130522
  25. AUGMENTIN [Concomitant]
     Dosage: 875-125
     Dates: start: 20020214
  26. PREDNISONE [Concomitant]
     Dates: start: 20020214
  27. MOBIC [Concomitant]
     Dates: start: 20020214

REACTIONS (10)
  - Ankle fracture [Unknown]
  - Fall [Unknown]
  - Facial bones fracture [Unknown]
  - Upper limb fracture [Unknown]
  - Malaise [Unknown]
  - Pain [Unknown]
  - Osteoporosis [Unknown]
  - Arthritis [Unknown]
  - Lower limb fracture [Unknown]
  - Type 2 diabetes mellitus [Unknown]
